FAERS Safety Report 6041285-8 (Version None)
Quarter: 2009Q1

REPORT INFORMATION
  Report Type: 
  Country: None (occurrence: None)
  Receive Date: 20090116
  Receipt Date: 20080926
  Transmission Date: 20090719
  Serious: No
  Sender: FDA-Public Use
  Company Number: US-BRISTOL-MYERS SQUIBB COMPANY-14349948

PATIENT
  Age: 68 Year
  Sex: Male
  Weight: 59 kg

DRUGS (4)
  1. ABILIFY [Suspect]
     Indication: SCHIZOPHRENIA
  2. ABILIFY [Suspect]
     Indication: MAJOR DEPRESSION
  3. AVODART [Suspect]
     Indication: BENIGN PROSTATIC HYPERPLASIA
  4. REMERON [Concomitant]

REACTIONS (1)
  - HYPOTENSION [None]
